FAERS Safety Report 4630581-4 (Version None)
Quarter: 2005Q2

REPORT INFORMATION
  Report Type: 
  Country: None (occurrence: None)
  Receive Date: 20050408
  Receipt Date: 20050401
  Transmission Date: 20051028
  Serious: Yes (Life-Threatening)
  Sender: FDA-Public Use
  Company Number: US-MERCK-0504USA00242

PATIENT
  Age: 70 Year
  Sex: Female

DRUGS (12)
  1. EMEND [Suspect]
     Indication: CHEMOTHERAPY
     Route: 048
     Dates: start: 20050301, end: 20050301
  2. EMEND [Suspect]
     Route: 048
     Dates: start: 20050301, end: 20050301
  3. COUMADIN [Concomitant]
     Route: 065
  4. ZOLOFT [Concomitant]
     Route: 065
  5. ATIVAN [Concomitant]
     Route: 065
  6. TESSALON [Concomitant]
     Route: 065
  7. FOLIC ACID [Concomitant]
     Route: 065
  8. KYTRIL [Concomitant]
     Route: 065
  9. DEXAMETHASONE [Concomitant]
     Route: 065
  10. COMPAZINE [Concomitant]
     Route: 065
  11. LASIX [Concomitant]
     Route: 065
  12. ANTINEOPLASTIC (UNSPECIFIED) [Concomitant]
     Route: 065

REACTIONS (1)
  - INTERNATIONAL NORMALISED RATIO INCREASED [None]
